FAERS Safety Report 19440802 (Version 4)
Quarter: 2021Q2

REPORT INFORMATION
  Report Type: Report from Study
  Country: KR (occurrence: KR)
  Receive Date: 20210621
  Receipt Date: 20210625
  Transmission Date: 20210717
  Serious: Yes (Death, Hospitalization)
  Sender: FDA-Public Use
  Company Number: KR-ROCHE-2800968

PATIENT
  Age: 53 Year
  Sex: Female
  Weight: 43 kg

DRUGS (147)
  1. NORZYME [Concomitant]
     Indication: DYSPEPSIA
     Dates: start: 20201209, end: 20210326
  2. REXEN [Concomitant]
     Indication: PROCTALGIA
     Dates: start: 20210221, end: 20210305
  3. ESROBAN [Concomitant]
     Dates: start: 20210302, end: 20210304
  4. FERINJECT [Concomitant]
     Active Substance: FERRIC CARBOXYMALTOSE
     Dates: start: 20210427, end: 20210427
  5. MYPOL (SOUTH KOREA) [Concomitant]
     Dates: start: 20210306, end: 20210313
  6. MACPERAN [Concomitant]
     Active Substance: METOCLOPRAMIDE HYDROCHLORIDE
     Dates: start: 20210515, end: 20210515
  7. PACKED RBC [Concomitant]
     Indication: ANAEMIA
     Dates: start: 20210324, end: 20210324
  8. PACKED RBC [Concomitant]
     Indication: ANAEMIA
     Route: 042
     Dates: start: 20210404, end: 20210404
  9. PACKED RBC [Concomitant]
     Dates: start: 20210608, end: 20210608
  10. PENIRAMIN [Concomitant]
     Indication: HYPERSENSITIVITY
     Dates: start: 20210324, end: 20210324
  11. PENIRAMIN [Concomitant]
     Dates: start: 20210327, end: 20210327
  12. PENIRAMIN [Concomitant]
     Dates: start: 20210529, end: 20210529
  13. PENIRAMIN [Concomitant]
     Dates: start: 20210607, end: 20210607
  14. PENIRAMIN [Concomitant]
     Dates: start: 20210608, end: 20210608
  15. PETHIDINE [Concomitant]
     Active Substance: MEPERIDINE
     Dates: start: 20210403, end: 20210403
  16. CEFTRIAXONE. [Concomitant]
     Active Substance: CEFTRIAXONE
     Indication: URINARY TRACT INFECTION
     Dates: start: 20210324, end: 20210412
  17. TRIDOL [Concomitant]
     Active Substance: TRAMADOL HYDROCHLORIDE
     Dates: start: 20210329, end: 20210329
  18. TRIDOL [Concomitant]
     Active Substance: TRAMADOL HYDROCHLORIDE
     Route: 030
     Dates: start: 20210403, end: 20210404
  19. TRIDOL [Concomitant]
     Active Substance: TRAMADOL HYDROCHLORIDE
     Route: 042
     Dates: start: 20210505, end: 20210515
  20. BANAN [Concomitant]
     Active Substance: CEFPODOXIME PROXETIL
     Dates: start: 20210525, end: 20210602
  21. WINUF PERI [Concomitant]
     Active Substance: AMINO ACIDS\DEXTROSE\ELECTROLYTES NOS\SOYBEAN OIL\VITAMINS
     Dates: start: 20210327, end: 20210417
  22. PHOSTEN [Concomitant]
     Indication: HYPOKALAEMIA
     Dates: start: 20210329, end: 20210329
  23. DUROGESIC D?TRANS [Concomitant]
     Active Substance: FENTANYL
     Indication: ANAL FISSURE
     Dates: start: 20210403
  24. CACL2 [Concomitant]
     Indication: HYPOCALCAEMIA
     Dates: start: 20210404, end: 20210404
  25. PLASMA [Concomitant]
     Active Substance: HUMAN PLASMA
     Indication: ANAEMIA
     Route: 042
     Dates: start: 20210404, end: 20210405
  26. PLASMA [Concomitant]
     Active Substance: HUMAN PLASMA
     Route: 042
     Dates: start: 20210610, end: 20210611
  27. AMODIPIN [Concomitant]
     Route: 048
     Dates: start: 20210609, end: 20210609
  28. AIRTAL [Concomitant]
     Active Substance: ACECLOFENAC
     Dates: start: 20210327, end: 20210327
  29. DIABEX [Concomitant]
     Active Substance: METFORMIN HYDROCHLORIDE
     Dates: start: 20210407, end: 20210407
  30. DUPHALAC EASY [Concomitant]
     Active Substance: LACTULOSE
     Indication: PROCTALGIA
     Dates: start: 20210219, end: 20210301
  31. FERINJECT [Concomitant]
     Active Substance: FERRIC CARBOXYMALTOSE
     Dates: start: 20210531, end: 20210531
  32. PACKED RBC [Concomitant]
     Dates: start: 20210414, end: 20210414
  33. PENIRAMIN [Concomitant]
     Dates: start: 20210508, end: 20210508
  34. PENIRAMIN [Concomitant]
     Dates: start: 20210601, end: 20210601
  35. PETHIDINE [Concomitant]
     Active Substance: MEPERIDINE
     Dates: start: 20210408, end: 20210408
  36. ALOXI [Concomitant]
     Active Substance: PALONOSETRON HYDROCHLORIDE
     Indication: NAUSEA
     Dates: start: 20210324, end: 20210324
  37. TRIDOL [Concomitant]
     Active Substance: TRAMADOL HYDROCHLORIDE
     Route: 042
     Dates: start: 20210522, end: 20210522
  38. UNI?C [Concomitant]
     Indication: ASTHENIA
     Dates: start: 20210325, end: 20210325
  39. KCL [Concomitant]
     Active Substance: POTASSIUM CHLORIDE
     Dates: start: 20210410, end: 20210411
  40. LASIX [Concomitant]
     Active Substance: FUROSEMIDE
     Dates: start: 20210405, end: 20210405
  41. PHOSTEN [Concomitant]
     Dates: start: 20210412, end: 20210412
  42. FLUMARIN (SOUTH KOREA) [Concomitant]
     Indication: PROPHYLAXIS
     Dates: start: 20210303, end: 20210303
  43. ALBUMIN [Concomitant]
     Active Substance: ALBUMIN HUMAN
     Dates: start: 20210407, end: 20210407
  44. ALBUMIN [Concomitant]
     Active Substance: ALBUMIN HUMAN
     Dates: start: 20210607, end: 20210607
  45. ULTRACET [Concomitant]
     Active Substance: ACETAMINOPHEN\TRAMADOL HYDROCHLORIDE
     Dates: start: 20210426
  46. KYTRIL [Concomitant]
     Active Substance: GRANISETRON HYDROCHLORIDE
     Indication: NAUSEA
     Dates: start: 20210408, end: 20210415
  47. NASEA [Concomitant]
     Active Substance: RAMOSETRON HYDROCHLORIDE
     Indication: NAUSEA
     Dates: start: 20210430, end: 20210430
  48. AIRTAL [Concomitant]
     Active Substance: ACECLOFENAC
     Indication: PROCTALGIA
     Dates: start: 20201107, end: 20210302
  49. ALMAGEL?F [Concomitant]
     Dates: start: 20201209, end: 20210326
  50. ALMAGEL?F [Concomitant]
     Dates: start: 20210328, end: 20210407
  51. NEURONTIN [Concomitant]
     Active Substance: GABAPENTIN
     Dates: start: 20210328, end: 20210407
  52. NEURONTIN [Concomitant]
     Active Substance: GABAPENTIN
     Dates: start: 20210409, end: 20210409
  53. MYPOL (SOUTH KOREA) [Concomitant]
     Dates: start: 20210403, end: 20210404
  54. CRAVIT [Concomitant]
     Active Substance: LEVOFLOXACIN
     Indication: URINARY TRACT INFECTION
     Dates: start: 20210304, end: 20210306
  55. PACKED RBC [Concomitant]
     Dosage: 7 OTHER
     Route: 042
     Dates: start: 20210611, end: 20210611
  56. TRIDOL [Concomitant]
     Active Substance: TRAMADOL HYDROCHLORIDE
     Indication: PROCTALGIA
     Dates: start: 20210325, end: 20210325
  57. TRIDOL [Concomitant]
     Active Substance: TRAMADOL HYDROCHLORIDE
     Dates: start: 20210401, end: 20210401
  58. TRIDOL [Concomitant]
     Active Substance: TRAMADOL HYDROCHLORIDE
     Route: 048
     Dates: start: 20210501, end: 20210524
  59. KCL [Concomitant]
     Active Substance: POTASSIUM CHLORIDE
     Dates: start: 20210427, end: 20210427
  60. ONSERAN [Concomitant]
     Indication: NAUSEA
     Dates: start: 20210331, end: 20210402
  61. ALBUMIN [Concomitant]
     Active Substance: ALBUMIN HUMAN
     Dates: start: 20210420, end: 20210420
  62. ALBUMIN [Concomitant]
     Active Substance: ALBUMIN HUMAN
     Dates: start: 20210327, end: 20210327
  63. ATEZOLIZUMAB. [Suspect]
     Active Substance: ATEZOLIZUMAB
     Indication: CERVIX CANCER METASTATIC
     Dosage: ON 24/MAR/2021, SHE RECEIVED A MOST RECENT DOSE OF ATEZOLIZUMAB (1200 MG) PRIOR TO EVENT.?ON 03/MAR/
     Route: 041
     Dates: start: 20210303
  64. AIRTAL [Concomitant]
     Active Substance: ACECLOFENAC
     Dates: start: 20210304, end: 20210304
  65. MAGNESIUM OXIDE. [Concomitant]
     Active Substance: MAGNESIUM OXIDE
     Indication: PROCTALGIA
     Dates: start: 20210303, end: 20210326
  66. FERINJECT [Concomitant]
     Active Substance: FERRIC CARBOXYMALTOSE
     Dates: start: 20210603, end: 20210603
  67. PACKED RBC [Concomitant]
     Route: 042
     Dates: start: 20210405, end: 20210406
  68. PENIRAMIN [Concomitant]
     Dates: start: 20210511, end: 20210511
  69. PENIRAMIN [Concomitant]
     Dates: start: 20210517, end: 20210517
  70. PETHIDINE [Concomitant]
     Active Substance: MEPERIDINE
     Dates: start: 20210407, end: 20210407
  71. BANAN [Concomitant]
     Active Substance: CEFPODOXIME PROXETIL
     Dates: start: 20210326, end: 20210326
  72. KCL [Concomitant]
     Active Substance: POTASSIUM CHLORIDE
     Dates: start: 20210413, end: 20210420
  73. LASIX [Concomitant]
     Active Substance: FUROSEMIDE
     Indication: PROPHYLAXIS
     Dates: start: 20210329, end: 20210329
  74. ALBUMIN [Concomitant]
     Active Substance: ALBUMIN HUMAN
     Dates: start: 20210508, end: 20210508
  75. SUSPEN ER [Concomitant]
     Indication: PYREXIA
     Dates: start: 20210406, end: 20210406
  76. TRIZELE [Concomitant]
     Active Substance: METRONIDAZOLE
     Dates: start: 20210408, end: 20210409
  77. LACTICARE HC [Concomitant]
     Indication: PRURITUS
     Route: 061
     Dates: start: 20210425, end: 20210427
  78. ALMAGEL?F [Concomitant]
     Dates: start: 20210409, end: 20210409
  79. FERINJECT [Concomitant]
     Active Substance: FERRIC CARBOXYMALTOSE
     Dates: start: 20210605, end: 20210605
  80. MACPERAN [Concomitant]
     Active Substance: METOCLOPRAMIDE HYDROCHLORIDE
     Dates: start: 20210330, end: 20210507
  81. PACKED RBC [Concomitant]
     Dates: start: 20210412, end: 20210412
  82. PETHIDINE [Concomitant]
     Active Substance: MEPERIDINE
     Indication: ANAL FISSURE
     Dates: start: 20210324, end: 20210324
  83. TRIDOL [Concomitant]
     Active Substance: TRAMADOL HYDROCHLORIDE
     Route: 030
     Dates: start: 20210330, end: 20210330
  84. KCL [Concomitant]
     Active Substance: POTASSIUM CHLORIDE
     Indication: HYPOKALAEMIA
     Dates: start: 20210327, end: 20210329
  85. ONSERAN [Concomitant]
     Dates: start: 20210401, end: 20210401
  86. ULTRACET [Concomitant]
     Active Substance: ACETAMINOPHEN\TRAMADOL HYDROCHLORIDE
     Indication: ANAL FISSURE
     Dates: start: 20210405, end: 20210405
  87. MICARDIS [Concomitant]
     Active Substance: TELMISARTAN
     Dates: start: 20210521, end: 20210523
  88. NORZYME [Concomitant]
     Dates: start: 20210328, end: 20210407
  89. DIABEX [Concomitant]
     Active Substance: METFORMIN HYDROCHLORIDE
     Dates: start: 20210323, end: 20210326
  90. DIABEX [Concomitant]
     Active Substance: METFORMIN HYDROCHLORIDE
     Dates: start: 20210331, end: 20210401
  91. MAGNESIUM OXIDE. [Concomitant]
     Active Substance: MAGNESIUM OXIDE
     Indication: ANAL FISSURE
     Dates: start: 20210323, end: 20210326
  92. MACPERAN [Concomitant]
     Active Substance: METOCLOPRAMIDE HYDROCHLORIDE
     Indication: NAUSEA
     Dates: start: 20210304, end: 20210304
  93. PENIRAMIN [Concomitant]
     Dates: start: 20210329, end: 20210329
  94. PENIRAMIN [Concomitant]
     Dates: start: 20210404, end: 20210407
  95. PENIRAMIN [Concomitant]
     Dates: start: 20210417, end: 20210418
  96. TRIDOL [Concomitant]
     Active Substance: TRAMADOL HYDROCHLORIDE
     Route: 048
     Dates: start: 20210524, end: 20210524
  97. POTENAMIN (SOUTH KOREA) [Concomitant]
     Indication: ASTHENIA
     Dates: start: 20210325, end: 20210325
  98. KCL [Concomitant]
     Active Substance: POTASSIUM CHLORIDE
     Dates: start: 20210406, end: 20210407
  99. PHOSTEN [Concomitant]
     Dates: start: 20210408, end: 20210409
  100. MUTERAN [Concomitant]
     Active Substance: ACETYLCYSTEINE
     Dates: start: 20210403, end: 20210404
  101. ALBUMIN [Concomitant]
     Active Substance: ALBUMIN HUMAN
     Dates: start: 20210426, end: 20210426
  102. ULTRACET [Concomitant]
     Active Substance: ACETAMINOPHEN\TRAMADOL HYDROCHLORIDE
     Dates: start: 20210407, end: 20210407
  103. NASERON [Concomitant]
     Active Substance: RAMOSETRON HYDROCHLORIDE
     Dates: start: 20210415, end: 20210430
  104. GASTER (SOUTH KOREA) [Concomitant]
     Indication: PEPTIC ULCER
     Dates: start: 20210408, end: 20210414
  105. AMODIPIN [Concomitant]
     Route: 048
     Dates: start: 20210521, end: 20210523
  106. TIRAGOLUMAB. [Suspect]
     Active Substance: TIRAGOLUMAB
     Indication: CERVIX CANCER METASTATIC
     Dosage: ON 24/MAR/2021, SHE RECEIVED MOST RECENT DOSE (600 MG) OF MTIG 7192A PRIOR TO SAE.?ON 03/MAR/2021, S
     Route: 042
     Dates: start: 20210303
  107. AIRTAL [Concomitant]
     Active Substance: ACECLOFENAC
     Dates: start: 20210426
  108. LEVAN H [Concomitant]
     Active Substance: .ALPHA.-TOCOPHEROL ACETATE\ALLANTOIN\LIDOCAINE\PREDNISOLONE
     Indication: PROCTALGIA
     Route: 062
     Dates: start: 20210220, end: 20210224
  109. FEROBA U SR [Concomitant]
     Indication: ANAEMIA
     Dates: start: 20210221, end: 20210326
  110. FERINJECT [Concomitant]
     Active Substance: FERRIC CARBOXYMALTOSE
     Indication: ANAEMIA
     Dates: start: 20210303, end: 20210303
  111. MYPOL (SOUTH KOREA) [Concomitant]
     Indication: PROCTALGIA
     Dates: start: 20210303, end: 20210303
  112. SELENASE T PRO [Concomitant]
     Indication: ASTHENIA
     Dates: start: 20210323, end: 20210325
  113. PENIRAMIN [Concomitant]
     Dates: start: 20210411, end: 20210414
  114. PHOSTEN [Concomitant]
     Dates: start: 20210406, end: 20210406
  115. PHOSTEN [Concomitant]
     Dates: start: 20210414, end: 20210416
  116. TRIZELE [Concomitant]
     Active Substance: METRONIDAZOLE
     Dates: start: 20210602, end: 20210611
  117. AMOBUROFEN [Concomitant]
     Indication: PYREXIA
     Dates: start: 20210409, end: 20210409
  118. TAZOPERAN [Concomitant]
     Indication: URINARY TRACT INFECTION
     Dates: start: 20210413, end: 20210525
  119. KERAL [Concomitant]
     Active Substance: DEXKETOPROFEN TROMETAMOL
     Indication: ANAL FISSURE
     Dates: start: 20210417, end: 20210430
  120. ACETAPHEN [Concomitant]
     Indication: PYREXIA
     Dates: start: 20210528, end: 20210528
  121. AIRTAL [Concomitant]
     Active Substance: ACECLOFENAC
     Dates: start: 20210404, end: 20210407
  122. NEURONTIN [Concomitant]
     Active Substance: GABAPENTIN
     Indication: PARAESTHESIA
     Dates: start: 20201209, end: 20210326
  123. DIABEX [Concomitant]
     Active Substance: METFORMIN HYDROCHLORIDE
     Dates: start: 20201230, end: 20210302
  124. MAGNESIUM OXIDE. [Concomitant]
     Active Substance: MAGNESIUM OXIDE
     Dates: start: 20210328, end: 20210407
  125. PACKED RBC [Concomitant]
     Route: 042
     Dates: start: 20210405, end: 20210406
  126. PACKED RBC [Concomitant]
     Route: 042
     Dates: start: 20210529, end: 20210529
  127. PACKED RBC [Concomitant]
     Route: 042
     Dates: start: 20210610, end: 20210610
  128. PENIRAMIN [Concomitant]
     Dates: start: 20210409, end: 20210409
  129. PENIRAMIN [Concomitant]
     Dates: start: 20210420, end: 20210420
  130. PENIRAMIN [Concomitant]
     Dates: start: 20210425, end: 20210426
  131. PENIRAMIN [Concomitant]
     Dates: start: 20210502, end: 20210503
  132. BEECOM HEXA [Concomitant]
     Indication: ASTHENIA
     Dates: start: 20210325, end: 20210325
  133. TRIDOL [Concomitant]
     Active Substance: TRAMADOL HYDROCHLORIDE
     Route: 030
     Dates: start: 20210331, end: 20210331
  134. TRIDOL [Concomitant]
     Active Substance: TRAMADOL HYDROCHLORIDE
     Route: 042
     Dates: start: 20210516, end: 20210516
  135. KCL [Concomitant]
     Active Substance: POTASSIUM CHLORIDE
     Dates: start: 20210601, end: 20210601
  136. MUTERAN [Concomitant]
     Active Substance: ACETYLCYSTEINE
     Dates: start: 20210408, end: 20210604
  137. ALBUMIN [Concomitant]
     Active Substance: ALBUMIN HUMAN
     Indication: HYPOALBUMINAEMIA
     Dates: start: 20210404, end: 20210405
  138. ALBUMIN [Concomitant]
     Active Substance: ALBUMIN HUMAN
     Dates: start: 20210408, end: 20210409
  139. ALBUMIN [Concomitant]
     Active Substance: ALBUMIN HUMAN
     Dates: start: 20210412, end: 20210412
  140. ALBUMIN [Concomitant]
     Active Substance: ALBUMIN HUMAN
     Dates: start: 20210601, end: 20210601
  141. NASERON [Concomitant]
     Active Substance: RAMOSETRON HYDROCHLORIDE
     Indication: NAUSEA
     Dates: start: 20210406, end: 20210408
  142. COOLPREP [Concomitant]
     Dates: start: 20210407, end: 20210407
  143. GASTER (SOUTH KOREA) [Concomitant]
     Dates: start: 20210502
  144. PLASMA SOLUTION A [Concomitant]
     Indication: ANAEMIA
     Route: 042
     Dates: start: 20210408, end: 20210413
  145. PLASMA SOLUTION A [Concomitant]
     Indication: ANAEMIA
  146. AMODIPIN [Concomitant]
     Indication: HYPERTENSION
     Dates: start: 20210507, end: 20210507
  147. AMODIPIN [Concomitant]
     Route: 048
     Dates: start: 20210603, end: 20210603

REACTIONS (4)
  - Female genital tract fistula [Not Recovered/Not Resolved]
  - Platelet count decreased [Recovered/Resolved]
  - Deep vein thrombosis [Recovering/Resolving]
  - Sepsis [Fatal]

NARRATIVE: CASE EVENT DATE: 20210326
